FAERS Safety Report 12641621 (Version 1)
Quarter: 2016Q3

REPORT INFORMATION
  Report Type: Spontaneous
  Country: LT (occurrence: LT)
  Receive Date: 20160810
  Receipt Date: 20160810
  Transmission Date: 20161109
  Serious: Yes (Death, Hospitalization)
  Sender: FDA-Public Use
  Company Number: LT-ASTRAZENECA-2016SE83851

PATIENT
  Age: 72 Year
  Sex: Female
  Weight: 100 kg

DRUGS (3)
  1. LYNPARZA [Suspect]
     Active Substance: OLAPARIB
     Indication: OVARIAN CANCER
     Route: 048
     Dates: start: 20150310, end: 20160202
  2. PAKLITAKSELIS [Concomitant]
     Indication: NEOPLASM PROGRESSION
     Route: 042
     Dates: start: 20160628, end: 20160629
  3. KARBOPLATINA [Concomitant]
     Indication: NEOPLASM PROGRESSION
     Dosage: 150.0MG UNKNOWN
     Route: 042
     Dates: start: 20160628, end: 20160629

REACTIONS (2)
  - Haematoma [Unknown]
  - Acute leukaemia [Fatal]

NARRATIVE: CASE EVENT DATE: 20160418
